FAERS Safety Report 4824537-6 (Version None)
Quarter: 2005Q4

REPORT INFORMATION
  Report Type: 
  Country: None (occurrence: None)
  Receive Date: 20051108
  Receipt Date: 20051108
  Transmission Date: 20060501
  Serious: No
  Sender: FDA-Public Use
  Company Number: None

PATIENT
  Age: 55 Year
  Sex: Male
  Weight: 49.8957 kg

DRUGS (11)
  1. DILAUDID [Suspect]
     Indication: ABDOMINAL PAIN
     Dosage: 4 MG TID PO
     Route: 048
  2. METHODINE [Concomitant]
  3. VITAMIN D [Concomitant]
  4. VITAMIN E [Concomitant]
  5. VITAMIN A [Concomitant]
  6. ASCORBIC ACID [Concomitant]
  7. PANCREAS [Concomitant]
  8. INSULIN [Concomitant]
  9. AMITHYLINE [Concomitant]
  10. FOSAMAX [Concomitant]
  11. CALCIUM GLUCONATE [Concomitant]

REACTIONS (3)
  - DRUG EFFECT DECREASED [None]
  - DYSPHORIA [None]
  - THERAPEUTIC RESPONSE UNEXPECTED WITH DRUG SUBSTITUTION [None]
